FAERS Safety Report 6747596-2 (Version None)
Quarter: 2010Q2

REPORT INFORMATION
  Report Type: 
  Country: None (occurrence: None)
  Receive Date: 20100528
  Receipt Date: 20100519
  Transmission Date: 20101027
  Serious: Yes (Death)
  Sender: FDA-Public Use
  Company Number: US-JNJFOC-20100505370

PATIENT
  Age: 11 Month

DRUGS (2)
  1. TYLENOL INFANTS LIQUID GRAPE [Suspect]
     Route: 048
  2. TYLENOL INFANTS LIQUID GRAPE [Suspect]
     Indication: DRUG USE FOR UNKNOWN INDICATION
     Route: 048

REACTIONS (2)
  - DEATH [None]
  - PRODUCT QUALITY ISSUE [None]
